FAERS Safety Report 8604881-7 (Version None)
Quarter: 2012Q3

REPORT INFORMATION
  Report Type: 
  Country: None (occurrence: None)
  Receive Date: 20120820
  Receipt Date: 20120807
  Transmission Date: 20120928
  Serious: Yes (Other)
  Sender: FDA-Public Use
  Company Number: US-ASTELLAS-2012US007044

PATIENT
  Sex: Male

DRUGS (1)
  1. TARCEVA [Suspect]
     Indication: PRODUCT USED FOR UNKNOWN INDICATION
     Dosage: UNK
     Route: 048

REACTIONS (7)
  - RASH [None]
  - EYE INFECTION [None]
  - SCROTAL SWELLING [None]
  - ABDOMINAL DISTENSION [None]
  - DIARRHOEA [None]
  - GROIN INFECTION [None]
  - FAECAL INCONTINENCE [None]
